FAERS Safety Report 10549867 (Version 1)
Quarter: 2014Q4

REPORT INFORMATION
  Report Type: Spontaneous
  Country: US (occurrence: US)
  Receive Date: 20141028
  Receipt Date: 20141028
  Transmission Date: 20150529
  Serious: No
  Sender: FDA-Public Use
  Company Number: US-TARO-2014P1004424

PATIENT

DRUGS (1)
  1. PHENYTOIN SODIUM EXTENDED [Suspect]
     Active Substance: PHENYTOIN SODIUM

REACTIONS (1)
  - Dysphagia [Unknown]
